FAERS Safety Report 11529365 (Version 1)
Quarter: 2015Q3

REPORT INFORMATION
  Report Type: Report from Study
  Country: US (occurrence: US)
  Receive Date: 20150921
  Receipt Date: 20150921
  Transmission Date: 20151125
  Serious: Yes (Hospitalization)
  Sender: FDA-Public Use
  Company Number: PHHO2015US014352

PATIENT
  Age: 54 Year
  Sex: Male
  Weight: 64.4 kg

DRUGS (1)
  1. AFINITOR [Suspect]
     Active Substance: EVEROLIMUS
     Indication: MEDULLARY THYROID CANCER
     Dosage: 10 MG, QD
     Route: 048
     Dates: start: 20150715, end: 20150828

REACTIONS (4)
  - Oesophageal candidiasis [Unknown]
  - Anaemia [Unknown]
  - Pneumonitis [Unknown]
  - Gastric haemorrhage [Unknown]

NARRATIVE: CASE EVENT DATE: 20150828
